FAERS Safety Report 4819605-9 (Version None)
Quarter: 2005Q4

REPORT INFORMATION
  Report Type: 
  Country: None (occurrence: None)
  Receive Date: 20051103
  Receipt Date: 20050504
  Transmission Date: 20060501
  Serious: Yes (Hospitalization)
  Sender: FDA-Public Use
  Company Number: US-AMGEN-US131284

PATIENT
  Age: 78 Year
  Sex: Female
  Weight: 59.2 kg

DRUGS (9)
  1. NEULASTA [Suspect]
     Indication: CHEMOTHERAPY
     Route: 058
     Dates: start: 20040817, end: 20040817
  2. CISPLATIN [Suspect]
     Indication: OVARIAN CANCER
     Route: 042
     Dates: start: 20040816, end: 20040816
  3. METOPROLOL [Concomitant]
     Route: 065
  4. SIMVASTATIN [Concomitant]
     Route: 065
  5. LORAZEPAM [Concomitant]
     Route: 065
  6. TRIMETHOBENZAMIDE HCL [Concomitant]
     Route: 065
  7. APRESOLINE [Concomitant]
  8. IMDUR [Concomitant]
  9. LOPRESSOR [Concomitant]

REACTIONS (5)
  - CARDIAC FAILURE CONGESTIVE [None]
  - CARDIOVASCULAR DISORDER [None]
  - HYPERTENSION [None]
  - PULMONARY OEDEMA [None]
  - RESPIRATORY FAILURE [None]
